FAERS Safety Report 10062693 (Version 1)
Quarter: 2014Q2

REPORT INFORMATION
  Report Type: Spontaneous
  Country: US (occurrence: US)
  Receive Date: 20140407
  Receipt Date: 20140407
  Transmission Date: 20141212
  Serious: Yes (Other)
  Sender: FDA-Public Use
  Company Number: US-GLAXOSMITHKLINE-A1062710A

PATIENT
  Age: 45 Year
  Sex: Female

DRUGS (3)
  1. LOVAZA [Suspect]
     Indication: BLOOD TRIGLYCERIDES INCREASED
     Dosage: 2TAB TWICE PER DAY
     Route: 048
     Dates: start: 2008
  2. NIACIN [Concomitant]
  3. PROBIOTIC [Concomitant]

REACTIONS (6)
  - Lung infection [Recovered/Resolved]
  - Pruritus [Recovered/Resolved]
  - Poor quality sleep [Recovered/Resolved]
  - Nasopharyngitis [Recovered/Resolved]
  - Eczema [Recovered/Resolved]
  - Decreased immune responsiveness [Recovered/Resolved]
